FAERS Safety Report 5201383-5 (Version None)
Quarter: 2007Q1

REPORT INFORMATION
  Report Type: 
  Country: None (occurrence: None)
  Receive Date: 20070104
  Receipt Date: 20061219
  Transmission Date: 20070707
  Serious: Yes (Hospitalization)
  Sender: FDA-Public Use
  Company Number: GXKR2006US08302

PATIENT
  Age: 8 Week
  Sex: Male

DRUGS (1)
  1. TRAMADOL HCL [Suspect]

REACTIONS (5)
  - BLOOD PRESSURE INCREASED [None]
  - HEART RATE INCREASED [None]
  - MENINGITIS [None]
  - OVERDOSE [None]
  - RESPIRATORY RATE INCREASED [None]
